FAERS Safety Report 21114656 (Version 1)
Quarter: 2022Q3

REPORT INFORMATION
  Report Type: Spontaneous
  Country: US (occurrence: US)
  Receive Date: 20220721
  Receipt Date: 20220721
  Transmission Date: 20221027
  Serious: No
  Sender: FDA-Public Use
  Company Number: US-MEDEXUS PHARMA, INC.-2022MED00202

PATIENT
  Age: 39 Year
  Sex: Female
  Weight: 114.76 kg

DRUGS (3)
  1. RASUVO [Suspect]
     Active Substance: METHOTREXATE SODIUM
     Indication: Rheumatoid arthritis
     Dosage: 15 MG/0.3 ML INJECTED IN THIGH, 1X/WEEK ON MONDAYS
     Dates: start: 20220411
  2. RASUVO [Suspect]
     Active Substance: METHOTREXATE SODIUM
     Indication: Fibromyalgia
  3. RASUVO [Suspect]
     Active Substance: METHOTREXATE SODIUM
     Indication: Nerve injury

REACTIONS (3)
  - Skin discolouration [Unknown]
  - Exposure via skin contact [Recovered/Resolved]
  - Device leakage [Recovered/Resolved]

NARRATIVE: CASE EVENT DATE: 20220411
